FAERS Safety Report 12539264 (Version 1)
Quarter: 2016Q3

REPORT INFORMATION
  Report Type: Spontaneous
  Country: US (occurrence: None)
  Receive Date: 20160707
  Receipt Date: 20160707
  Transmission Date: 20161109
  Serious: Yes (Other)
  Sender: FDA-Public Use
  Company Number: None

PATIENT
  Age: 69 Year
  Sex: Female
  Weight: 56.7 kg

DRUGS (12)
  1. EFFEXOR [Concomitant]
     Active Substance: VENLAFAXINE HYDROCHLORIDE
  2. BIOTIN [Concomitant]
     Active Substance: BIOTIN
  3. SHITAKE CAP [Concomitant]
  4. VITAMIN D3 [Concomitant]
     Active Substance: CHOLECALCIFEROL
  5. ST. JOHN^S WORT [Concomitant]
     Active Substance: ST. JOHN^S WORT
  6. GLUCOSAMINE CHONDROITIN [Concomitant]
     Active Substance: CHONDROITIN SULFATE (BOVINE)\GLUCOSAMINE HYDROCHLORIDE
  7. DIGESTALL ENZYME [Concomitant]
  8. ANASTROZOLE. [Suspect]
     Active Substance: ANASTROZOLE
     Indication: PROPHYLAXIS
     Route: 048
     Dates: start: 20160220, end: 20160515
  9. ANASTROZOLE. [Suspect]
     Active Substance: ANASTROZOLE
     Indication: AROMATASE INHIBITION THERAPY
     Route: 048
     Dates: start: 20160220, end: 20160515
  10. ASHWAGAN [Concomitant]
  11. CAL.-MAGNESIUM [Concomitant]
  12. BETAINE HCL 1-3 [Concomitant]

REACTIONS (3)
  - Dyspnoea [None]
  - Visual impairment [None]
  - Palpitations [None]

NARRATIVE: CASE EVENT DATE: 20160506
